FAERS Safety Report 6242410-6 (Version None)
Quarter: 2009Q2

REPORT INFORMATION
  Report Type: 
  Country: None (occurrence: None)
  Receive Date: 20090624
  Receipt Date: 20090612
  Transmission Date: 20091009
  Serious: Yes (Hospitalization, Other)
  Sender: FDA-Public Use
  Company Number: CA-JNJFOC-20090103947

PATIENT
  Sex: Female
  Weight: 54.5 kg

DRUGS (16)
  1. REMICADE [Suspect]
     Route: 042
  2. REMICADE [Suspect]
     Route: 042
  3. REMICADE [Suspect]
     Dosage: 2ND DOSE
     Route: 042
  4. REMICADE [Suspect]
     Indication: CROHN'S DISEASE
     Dosage: ^TO THE PRESENT^
     Route: 042
  5. IRON [Concomitant]
  6. METAMUCIL [Concomitant]
  7. STEROIDS NOS [Concomitant]
     Route: 042
  8. PREDNISONE [Concomitant]
     Route: 048
  9. PREDNISONE [Concomitant]
     Route: 048
  10. PREDNISONE [Concomitant]
     Route: 048
  11. IMURAN [Concomitant]
     Dosage: ^TWO A DAY^
  12. METHYLPREDNISOLONE [Concomitant]
  13. PREMARIN [Concomitant]
  14. DYAZIDE [Concomitant]
  15. ALTACE [Concomitant]
  16. TEGRETOL [Concomitant]

REACTIONS (4)
  - BOWEN'S DISEASE [None]
  - CONVULSION [None]
  - CROHN'S DISEASE [None]
  - DIARRHOEA [None]
